FAERS Safety Report 16079917 (Version 4)
Quarter: 2021Q3

REPORT INFORMATION
  Report Type: Spontaneous
  Country: CA (occurrence: CA)
  Receive Date: 20190315
  Receipt Date: 20210907
  Transmission Date: 20211014
  Serious: Yes (Death, Hospitalization, Other)
  Sender: FDA-Public Use
  Company Number: CA-SAMSUNG BIOEPIS-SB-2019-06234

PATIENT
  Age: 55 Year
  Sex: Male
  Weight: 98 kg

DRUGS (27)
  1. HYDROMORPH CONTIN [Concomitant]
     Active Substance: HYDROMORPHONE
     Dosage: CAPSULE SUSTAINED RELEASE
     Route: 048
  2. TARO?WARFARIN [Concomitant]
     Active Substance: WARFARIN
     Indication: COAGULOPATHY
     Route: 048
  3. PANTOPRAZOLE [Concomitant]
     Active Substance: PANTOPRAZOLE
     Indication: PRODUCT USED FOR UNKNOWN INDICATION
     Route: 048
  4. AZATHIOPRINE TEVA [Concomitant]
     Active Substance: AZATHIOPRINE
     Indication: PRODUCT USED FOR UNKNOWN INDICATION
     Route: 048
  5. FOLIC ACID. [Concomitant]
     Active Substance: FOLIC ACID
     Indication: PRODUCT USED FOR UNKNOWN INDICATION
     Route: 048
  6. JAMP CALCIUM [Concomitant]
     Indication: OSTEOPOROSIS
     Route: 048
  7. LASIX SPECIAL [Concomitant]
     Route: 048
  8. PREDNISONE. [Concomitant]
     Active Substance: PREDNISONE
     Indication: PRODUCT USED FOR UNKNOWN INDICATION
     Dosage: UNKNOWN
     Route: 048
  9. PREDNISONE. [Concomitant]
     Active Substance: PREDNISONE
     Dosage: UNKNOWN
     Route: 048
  10. AZATHIOPRINE TEVA [Concomitant]
     Active Substance: AZATHIOPRINE
     Route: 048
  11. D?ALPHA TOCOPHERYL ACETATE [Concomitant]
     Active Substance: .ALPHA.-TOCOPHEROL ACETATE, D-
     Indication: PRODUCT USED FOR UNKNOWN INDICATION
     Route: 048
  12. AZATHIOPRINE. [Concomitant]
     Active Substance: AZATHIOPRINE
     Indication: PRODUCT USED FOR UNKNOWN INDICATION
     Route: 048
  13. CALCIUM CARBONATE. [Concomitant]
     Active Substance: CALCIUM CARBONATE
     Indication: OSTEOPOROSIS
     Route: 048
  14. INFLIXIMAB [Suspect]
     Active Substance: INFLIXIMAB
     Indication: CROHN^S DISEASE
     Route: 042
  15. INFLIXIMAB [Suspect]
     Active Substance: INFLIXIMAB
     Route: 042
  16. METOPROLOL L [Concomitant]
     Indication: BLOOD PRESSURE ABNORMAL
     Route: 048
  17. PANTOPRAZOLE SANDOZ [Concomitant]
     Active Substance: PANTOPRAZOLE SODIUM
     Indication: PRODUCT USED FOR UNKNOWN INDICATION
     Route: 048
  18. TARO?WARFARIN [Concomitant]
     Active Substance: WARFARIN
     Route: 048
  19. ARANESP [Concomitant]
     Active Substance: DARBEPOETIN ALFA
     Dosage: SOLUTION INTRAVENOUS
     Route: 058
  20. HYDROMORPH CONTIN [Concomitant]
     Active Substance: HYDROMORPHONE
     Indication: PAIN
     Route: 048
  21. PREDNISONE. [Concomitant]
     Active Substance: PREDNISONE
     Route: 048
  22. PREDNISONE TEVA [Concomitant]
     Active Substance: PREDNISONE
     Dosage: UNKNOWN
     Route: 048
  23. ULTIBRO BREEZHALER [Concomitant]
     Active Substance: GLYCOPYRRONIUM\INDACATEROL
     Indication: PRODUCT USED FOR UNKNOWN INDICATION
     Dosage: UNKNOWN
     Route: 048
  24. ARANESP [Concomitant]
     Active Substance: DARBEPOETIN ALFA
     Indication: ANAEMIA
     Route: 058
  25. LASIX SPECIAL [Concomitant]
     Indication: PRODUCT USED FOR UNKNOWN INDICATION
     Route: 048
  26. PREDNISONE TEVA [Concomitant]
     Active Substance: PREDNISONE
     Indication: PRODUCT USED FOR UNKNOWN INDICATION
     Route: 048
  27. METOPROLOL TARTRATE. [Concomitant]
     Active Substance: METOPROLOL TARTRATE
     Indication: BLOOD PRESSURE ABNORMAL
     Route: 048

REACTIONS (31)
  - Malaise [Fatal]
  - Cataract [Fatal]
  - Oropharyngeal pain [Fatal]
  - Sputum discoloured [Fatal]
  - Arthralgia [Fatal]
  - Kidney congestion [Fatal]
  - Therapeutic product effect incomplete [Fatal]
  - Off label use [Fatal]
  - Condition aggravated [Not Recovered/Not Resolved]
  - Abdominal pain [Fatal]
  - Intestinal obstruction [Fatal]
  - Weight increased [Fatal]
  - Abnormal faeces [Fatal]
  - Poor venous access [Fatal]
  - Constipation [Fatal]
  - COVID-19 [Fatal]
  - Musculoskeletal pain [Not Recovered/Not Resolved]
  - Weight decreased [Fatal]
  - Haemoglobin decreased [Fatal]
  - Influenza [Fatal]
  - Blood pressure fluctuation [Not Recovered/Not Resolved]
  - Cough [Fatal]
  - Lung disorder [Fatal]
  - Osteomyelitis [Fatal]
  - Wound [Fatal]
  - Bladder obstruction [Fatal]
  - Intentional product use issue [Fatal]
  - Chronic kidney disease [Fatal]
  - Hypertension [Fatal]
  - Blood pressure increased [Fatal]
  - Cellulitis [Fatal]
